FAERS Safety Report 4600105-6 (Version None)
Quarter: 2005Q1

REPORT INFORMATION
  Report Type: 
  Country: None (occurrence: None)
  Receive Date: 20050303
  Receipt Date: 20050215
  Transmission Date: 20050727
  Serious: Yes (Hospitalization)
  Sender: FDA-Public Use
  Company Number: T05-GER-00858-01

PATIENT
  Age: 47 Year
  Sex: Female

DRUGS (5)
  1. ESCITALOPRAM (DOUBLE BLIND) (ESCITALOPRAM) [Suspect]
     Indication: DEPRESSION
     Dosage: 20 MG QD PO
     Route: 048
     Dates: start: 20041106
  2. ESCITALOPRAM (DOUBLE BLIND) (ESCITALOPRAM) [Suspect]
     Indication: PROPHYLAXIS
     Dosage: 20 MG QD PO
     Route: 048
     Dates: start: 20041106
  3. PEGASYS [Suspect]
     Indication: HEPATITIS C
     Dosage: 135 MG QW SC
     Route: 058
     Dates: start: 20041125, end: 20050204
  4. COPEGUS [Suspect]
     Indication: HEPATITIS C
     Dosage: 1200 MG QD PO
     Route: 048
     Dates: start: 20041125, end: 20050208
  5. METOPROLOL TARTRATE [Suspect]
     Indication: HYPERTENSION
     Dosage: 35 MG QD PO
     Route: 048

REACTIONS (2)
  - ALANINE AMINOTRANSFERASE INCREASED [None]
  - JAUNDICE [None]
